FAERS Safety Report 18327755 (Version 5)
Quarter: 2021Q1

REPORT INFORMATION
  Report Type: Report from Study
  Country: AR (occurrence: AR)
  Receive Date: 20200929
  Receipt Date: 20210303
  Transmission Date: 20210419
  Serious: Yes (Other)
  Sender: FDA-Public Use
  Company Number: NVSC2020AR262433

PATIENT
  Age: 70 Year
  Sex: Female

DRUGS (8)
  1. KISQALI [Suspect]
     Active Substance: RIBOCICLIB
     Indication: BREAST CANCER METASTATIC
     Dosage: 600 MG, QD (ONCE DAILY) (FORMULATION: CAPSULE)
     Route: 048
     Dates: start: 20190814
  2. LETROZOLE. [Suspect]
     Active Substance: LETROZOLE
     Indication: PRODUCT USED FOR UNKNOWN INDICATION
     Dosage: 1 DF, QD
     Route: 048
  3. KISQALI [Suspect]
     Active Substance: RIBOCICLIB
     Dosage: 600 MG, QD
     Route: 048
     Dates: start: 20201008
  4. IBUPROFEN. [Concomitant]
     Active Substance: IBUPROFEN
     Indication: PAIN
     Dosage: UNK
     Route: 065
  5. KISQALI [Suspect]
     Active Substance: RIBOCICLIB
     Dosage: 400 MG, QD
     Route: 065
  6. KISQALI [Suspect]
     Active Substance: RIBOCICLIB
     Dosage: 600 MG, BID
     Route: 048
     Dates: start: 20190814, end: 20210131
  7. DENOSUMAB [Concomitant]
     Active Substance: DENOSUMAB
     Indication: PRODUCT USED FOR UNKNOWN INDICATION
     Dosage: UNK, QMO
     Route: 065
  8. AMLODIPINE [Concomitant]
     Active Substance: AMLODIPINE BESYLATE
     Indication: DISCOMFORT
     Dosage: UNK
     Route: 065

REACTIONS (6)
  - Inappropriate schedule of product administration [Unknown]
  - Metastases to lung [Not Recovered/Not Resolved]
  - Malaise [Recovered/Resolved]
  - Decreased immune responsiveness [Unknown]
  - Pulmonary mass [Not Recovered/Not Resolved]
  - Breast cancer recurrent [Unknown]

NARRATIVE: CASE EVENT DATE: 20210101
